FAERS Safety Report 9889435 (Version 1)
Quarter: 2014Q1

REPORT INFORMATION
  Report Type: Spontaneous
  Country: US (occurrence: US)
  Receive Date: 20140211
  Receipt Date: 20140211
  Transmission Date: 20141002
  Serious: Yes (Other)
  Sender: FDA-Public Use
  Company Number: US-ASTRAZENECA-2014SE07658

PATIENT
  Sex: Male

DRUGS (2)
  1. TOPROL-XL [Suspect]
     Indication: TACHYCARDIA
     Route: 048
  2. TOPROL-XL [Suspect]
     Indication: TACHYCARDIA
     Route: 048

REACTIONS (10)
  - Neuromyopathy [Unknown]
  - Bradycardia [Not Recovered/Not Resolved]
  - Heart rate increased [Recovered/Resolved]
  - Impaired driving ability [Unknown]
  - Deafness [Unknown]
  - Malaise [Unknown]
  - Sinus arrhythmia [Not Recovered/Not Resolved]
  - Atrial fibrillation [Unknown]
  - Off label use [Unknown]
  - Drug dose omission [Recovered/Resolved]
